FAERS Safety Report 4822821-3 (Version None)
Quarter: 2005Q4

REPORT INFORMATION
  Report Type: 
  Country: None (occurrence: None)
  Receive Date: 20051104
  Receipt Date: 20051022
  Transmission Date: 20060501
  Serious: Yes (Other)
  Sender: FDA-Public Use
  Company Number: 2005145726

PATIENT
  Age: 82 Year
  Sex: Female

DRUGS (2)
  1. XALATAN [Suspect]
     Indication: GLAUCOMA
     Dosage: 1 DROP (1 DROP, QD) OPHTHALMIC
  2. COSOPT [Concomitant]

REACTIONS (4)
  - CYSTITIS INTERSTITIAL [None]
  - EYE LASER SURGERY [None]
  - FEELING ABNORMAL [None]
  - OSTEOPOROSIS [None]
